FAERS Safety Report 10504672 (Version 2)
Quarter: 2014Q4

REPORT INFORMATION
  Report Type: Report from Study
  Country: US (occurrence: US)
  Receive Date: 20141008
  Receipt Date: 20141023
  Transmission Date: 20150528
  Serious: Yes (Death)
  Sender: FDA-Public Use
  Company Number: US-JNJFOC-20141004061

PATIENT
  Sex: Male
  Weight: 71 kg

DRUGS (10)
  1. MORPHINE [Concomitant]
     Active Substance: MORPHINE
  2. OMEPRAZOLE. [Concomitant]
     Active Substance: OMEPRAZOLE
  3. NORCO [Concomitant]
     Active Substance: ACETAMINOPHEN\HYDROCODONE BITARTRATE
  4. DOCUSATE [Concomitant]
     Active Substance: DOCUSATE
  5. METOPROLOL [Concomitant]
     Active Substance: METOPROLOL
  6. FENTANYL. [Concomitant]
     Active Substance: FENTANYL
  7. BACLOFEN. [Concomitant]
     Active Substance: BACLOFEN
  8. LACTULOSE. [Concomitant]
     Active Substance: LACTULOSE
  9. SUCRALFATE. [Concomitant]
     Active Substance: SUCRALFATE
  10. IMBRUVICA [Suspect]
     Active Substance: IBRUTINIB
     Indication: PRODUCT USED FOR UNKNOWN INDICATION
     Route: 048
     Dates: start: 20140910

REACTIONS (1)
  - Disease progression [Fatal]
